FAERS Safety Report 6118015-4 (Version None)
Quarter: 2009Q1

REPORT INFORMATION
  Report Type: 
  Country: None (occurrence: None)
  Receive Date: 20090314
  Receipt Date: 20090204
  Transmission Date: 20090719
  Serious: No
  Sender: FDA-Public Use
  Company Number: US-ABBOTT-09P-163-0501919-00

PATIENT
  Sex: Female
  Weight: 93.978 kg

DRUGS (6)
  1. HUMIRA [Suspect]
     Indication: RHEUMATOID ARTHRITIS
     Route: 058
     Dates: start: 20081101, end: 20081201
  2. HUMIRA [Suspect]
     Route: 058
     Dates: start: 20090101
  3. PREDNISONE [Concomitant]
     Indication: RHEUMATOID ARTHRITIS
  4. CLONIDINE [Concomitant]
     Indication: HYPERTENSION
  5. TWO OTHER HIGH BLOOD PRESSURE PILLS [Concomitant]
     Indication: HYPERTENSION
     Route: 048
  6. SOME OTHER UNKNOWN ARTHRITIS MEDS [Concomitant]
     Indication: RHEUMATOID ARTHRITIS

REACTIONS (2)
  - ERYTHEMA [None]
  - RASH [None]
